FAERS Safety Report 25933055 (Version 1)
Quarter: 2025Q4

REPORT INFORMATION
  Report Type: Spontaneous
  Country: EU (occurrence: EU)
  Receive Date: 20251017
  Receipt Date: 20251017
  Transmission Date: 20260118
  Serious: Yes (Death)
  Sender: AUROBINDO
  Company Number: EU-ABBVIE-6431534

PATIENT
  Age: 80 Year
  Sex: Female

DRUGS (19)
  1. AZACITIDINE [Suspect]
     Active Substance: AZACITIDINE
     Indication: Acute myeloid leukaemia
     Dosage: 75 MILLIGRAM (END OF CYCLE(7 DAYS))
     Route: 065
     Dates: start: 20240916, end: 20240922
  2. VENETOCLAX [Suspect]
     Active Substance: VENETOCLAX
     Indication: Acute myeloid leukaemia
     Dosage: 10 MILLIGRAM, ONCE A DAY (RAMP- UP DOSECYCLE 1)
     Route: 048
     Dates: start: 20240916, end: 20240916
  3. VENETOCLAX [Suspect]
     Active Substance: VENETOCLAX
     Dosage: 20 MILLIGRAM, ONCE A DAY (RAMP- UP DOSECYCLE 1)
     Route: 048
     Dates: start: 20240917, end: 20240917
  4. VENETOCLAX [Suspect]
     Active Substance: VENETOCLAX
     Dosage: 50 MILLIGRAM, ONCE A DAY (RAMP- UP DOSECYCLE 1)
     Route: 048
     Dates: start: 20240918, end: 20240918
  5. VENETOCLAX [Suspect]
     Active Substance: VENETOCLAX
     Dosage: 100 MILLIGRAM, ONCE A DAY (DOSE PERMANENTLY DISCONTINUEDCYCLE 1)
     Route: 048
     Dates: start: 20240919, end: 20241006
  6. ACYCLOVIR [Concomitant]
     Active Substance: ACYCLOVIR
     Indication: Antiviral prophylaxis
     Dosage: 400 MILLIGRAM, TWO TIMES A DAY
     Route: 048
     Dates: start: 20240916
  7. PANTOPRAZOLE SODIUM [Concomitant]
     Active Substance: PANTOPRAZOLE SODIUM
     Indication: Antacid therapy
     Dosage: 20 MILLIGRAM, ONCE A DAY
     Route: 048
     Dates: start: 20240916
  8. RAMIPRIL [Concomitant]
     Active Substance: RAMIPRIL
     Indication: Hypertension
     Dosage: 5 MILLIGRAM, ONCE A DAY
     Route: 048
     Dates: start: 20120505
  9. BISOPROLOL FUMARATE [Concomitant]
     Active Substance: BISOPROLOL FUMARATE
     Indication: Arrhythmia
     Dosage: 1.25 MILLIGRAM, ONCE A DAY
     Route: 048
     Dates: start: 2014
  10. AMLODIPINE [Concomitant]
     Active Substance: AMLODIPINE BESYLATE
     Indication: Hypertension
     Dosage: 5 MILLIGRAM, ONCE A DAY
     Route: 048
     Dates: start: 2012
  11. POSACONAZOLE [Concomitant]
     Active Substance: POSACONAZOLE
     Indication: Antifungal prophylaxis
     Dosage: 300 MILLIGRAM, ONCE A DAY
     Route: 048
     Dates: start: 20240916, end: 20241018
  12. ZOFRAN [Concomitant]
     Active Substance: ONDANSETRON HYDROCHLORIDE
     Indication: Prophylaxis of nausea and vomiting
     Dosage: 8 MILLIGRAM, ONCE A DAY
     Route: 042
     Dates: start: 20240816, end: 20240922
  13. MEROPENEM [Concomitant]
     Active Substance: MEROPENEM
     Indication: Pyrexia
     Dosage: 1 GRAM
     Route: 042
     Dates: start: 20240919, end: 20240924
  14. Vancomicin TF [Concomitant]
     Indication: Pyrexia
     Dosage: 1 GRAM, TWO TIMES A DAY
     Route: 042
     Dates: start: 20240919, end: 20240924
  15. Vancomicin TF [Concomitant]
     Indication: Pseudomonas infection
     Dosage: 1 GRAM, TWO TIMES A DAY
     Route: 042
     Dates: start: 20241008, end: 20241015
  16. AZITHROMYCIN [Concomitant]
     Active Substance: AZITHROMYCIN
     Indication: Pyrexia
     Dosage: 4.5 GRAM
     Route: 042
     Dates: start: 20240929, end: 20241004
  17. AMIKACIN [Concomitant]
     Active Substance: AMIKACIN
     Indication: Pyrexia
     Dosage: 1 GRAM, ONCE A DAY
     Route: 042
     Dates: start: 20240929, end: 20241004
  18. AVIBACTAM SODIUM\CEFTAZIDIME [Concomitant]
     Active Substance: AVIBACTAM SODIUM\CEFTAZIDIME
     Indication: Pseudomonas infection
     Dosage: 2000 MILLIGRAM, ONCE A DAY
     Route: 042
     Dates: start: 20241008, end: 20241015
  19. FILGRASTIM [Concomitant]
     Active Substance: FILGRASTIM
     Indication: Neutropenia
     Dosage: UNK
     Route: 065
     Dates: start: 20241007, end: 20241015

REACTIONS (2)
  - Disease progression [Fatal]
  - Hyponatraemia [Recovered/Resolved]

NARRATIVE: CASE EVENT DATE: 20241018
